FAERS Safety Report 18473665 (Version 1)
Quarter: 2020Q4

REPORT INFORMATION
  Report Type: Spontaneous
  Country: CN (occurrence: CN)
  Receive Date: 20201106
  Receipt Date: 20201106
  Transmission Date: 20210114
  Serious: Yes (Hospitalization, Other)
  Sender: FDA-Public Use
  Company Number: CN-PFIZER INC-2020429631

PATIENT
  Age: 79 Year
  Sex: Female
  Weight: 50 kg

DRUGS (18)
  1. OSSOTIDE [Concomitant]
     Active Substance: INVESTIGATIONAL PRODUCT
     Indication: THERAPEUTIC PROCEDURE
     Dosage: 2.000 DF, 3X/DAY
     Route: 048
     Dates: start: 20201002, end: 20201007
  2. GLYCEROL [Concomitant]
     Active Substance: GLYCERIN
  3. PANTOPRAZOLE SODIUM. [Concomitant]
     Active Substance: PANTOPRAZOLE SODIUM
     Indication: CHRONIC GASTRITIS
     Dosage: 20.000 MG, 2X/DAY
     Route: 048
     Dates: start: 20200929, end: 20201007
  4. CALCIUM GLUCONATE AND VITAMIN D2 [Concomitant]
  5. SI MO TANG [ARECA CATECHU SEED;AUCKLANDIA COSTUS ROOT;CITRUS AURANTIUM [Concomitant]
     Indication: ABDOMINAL DISTENSION
     Dosage: 10.00000 ML, 3X/DAY
     Route: 048
     Dates: start: 20200929, end: 20201007
  6. TRAMADOL HCL [Concomitant]
     Active Substance: TRAMADOL HYDROCHLORIDE
  7. INDOMETACIN [Concomitant]
     Active Substance: INDOMETHACIN
  8. VITAMIN B12 [Concomitant]
     Active Substance: CYANOCOBALAMIN
     Indication: NERVE BLOCK
     Dosage: UNK
     Dates: start: 20201002
  9. LIDOCAINE. [Concomitant]
     Active Substance: LIDOCAINE
     Indication: NERVE BLOCK
     Dosage: UNK
     Dates: start: 20201002
  10. CELEBREX [Suspect]
     Active Substance: CELECOXIB
     Indication: ANALGESIC THERAPY
     Dosage: 0.200 G, 1X/DAY
     Route: 048
     Dates: start: 20200929, end: 20201007
  11. ZHONG TONG AN JIAO NANG [Concomitant]
     Indication: ANALGESIC THERAPY
  12. LACTULOSE. [Concomitant]
     Active Substance: LACTULOSE
  13. BETAMETHASONE. [Concomitant]
     Active Substance: BETAMETHASONE
     Indication: NERVE BLOCK
     Dosage: UNK
     Dates: start: 20201002
  14. ESTAZOLAM. [Concomitant]
     Active Substance: ESTAZOLAM
  15. MANNITOL. [Concomitant]
     Active Substance: MANNITOL
  16. ZHONG TONG AN JIAO NANG [Concomitant]
     Indication: SWELLING
     Dosage: 2.000 DF, 2X/DAY
     Route: 048
     Dates: start: 20200929, end: 20201007
  17. METOPROLOL SUCCINATE. [Concomitant]
     Active Substance: METOPROLOL SUCCINATE
  18. DEXAMETHASONE SODIUM PHOSPHATE. [Concomitant]
     Active Substance: DEXAMETHASONE SODIUM PHOSPHATE

REACTIONS (8)
  - Papule [Unknown]
  - Erythema [Unknown]
  - Atrial fibrillation [Recovering/Resolving]
  - Pruritus [Recovering/Resolving]
  - Back pain [Unknown]
  - Rash [Recovering/Resolving]
  - Headache [Unknown]
  - Mouth ulceration [Unknown]

NARRATIVE: CASE EVENT DATE: 20201007
